FAERS Safety Report 4815971-9 (Version None)
Quarter: 2005Q4

REPORT INFORMATION
  Report Type: 
  Country: None (occurrence: None)
  Receive Date: 20051031
  Receipt Date: 20051003
  Transmission Date: 20060501
  Serious: Yes (Hospitalization)
  Sender: FDA-Public Use
  Company Number: US-ROCHE-420083

PATIENT
  Age: 42 Year
  Sex: Female
  Weight: 77.1 kg

DRUGS (1)
  1. ACCUTANE [Suspect]
     Indication: ACNE
     Route: 048
     Dates: start: 19900615, end: 19900615

REACTIONS (11)
  - ARTHRITIS ENTEROPATHIC [None]
  - COLITIS ULCERATIVE [None]
  - DEPRESSION [None]
  - DRY EYE [None]
  - FIBROMYALGIA [None]
  - GASTROINTESTINAL DISORDER [None]
  - HIRSUTISM [None]
  - LARGE INTESTINAL HAEMORRHAGE [None]
  - MENOPAUSE [None]
  - MENORRHAGIA [None]
  - POLYMENORRHOEA [None]
